FAERS Safety Report 18964079 (Version 2)
Quarter: 2021Q4

REPORT INFORMATION
  Report Type: Report from Study
  Country: DE (occurrence: DE)
  Receive Date: 20210303
  Receipt Date: 20211110
  Transmission Date: 20220303
  Serious: Yes (Other)
  Sender: FDA-Public Use
  Company Number: DE-SA-SAC20210211001341

PATIENT
  Age: 70 Year
  Sex: Male
  Weight: 80 kg

DRUGS (13)
  1. CARFILZOMIB [Suspect]
     Active Substance: CARFILZOMIB
     Indication: Plasma cell myeloma
     Dosage: 20 MG/M2 (DAYS1 AND 2) THEN 36 MG/M2 ON DAYS 8,9 AND 15, 16
     Route: 042
     Dates: start: 20190902, end: 20190902
  2. CARFILZOMIB [Suspect]
     Active Substance: CARFILZOMIB
     Dosage: 36 MG/M2, DAYS1,2,15,16
     Route: 042
     Dates: start: 20201126, end: 20201126
  3. LENALIDOMIDE [Suspect]
     Active Substance: LENALIDOMIDE
     Indication: Plasma cell myeloma
     Dosage: 25 MILLIGRAM, QD
     Route: 048
     Dates: start: 20190902, end: 20190902
  4. LENALIDOMIDE [Suspect]
     Active Substance: LENALIDOMIDE
     Dosage: 25 MILLIGRAM, QD
     Route: 048
     Dates: start: 20201127
  5. ISATUXIMAB [Suspect]
     Active Substance: ISATUXIMAB
     Indication: Plasma cell myeloma
     Dosage: 10 MG/KG, WK
     Route: 042
     Dates: start: 20190902, end: 20190902
  6. ISATUXIMAB [Suspect]
     Active Substance: ISATUXIMAB
     Dosage: 10 MG/KG, QOW
     Route: 042
     Dates: start: 20201126
  7. DEXAMETHASONE [Suspect]
     Active Substance: DEXAMETHASONE
     Indication: Plasma cell myeloma
     Dosage: 40 MILLIGRAM, QWK
     Route: 042
     Dates: start: 20190902, end: 20190902
  8. DEXAMETHASONE [Suspect]
     Active Substance: DEXAMETHASONE
     Dosage: 8 MG, DAYS 1, 2, 15, 16
     Route: 042
     Dates: start: 20201126, end: 20201126
  9. PENTACARINAT [Concomitant]
     Active Substance: PENTAMIDINE ISETHIONATE
     Indication: Antifungal prophylaxis
     Dosage: 300 MG, DATE OF LAST ADMINISTARTION PRIOR TO SAE: 27-NOV-2020
     Route: 065
     Dates: start: 20190902
  10. CALCIUM CARBONATE\CHOLECALCIFEROL [Concomitant]
     Active Substance: CALCIUM CARBONATE\CHOLECALCIFEROL
     Indication: Bone disorder
     Dosage: 500 MG, BID, DATE OF LAST ADMINISTARTION PRIOR TO SAE: 27-NOV-2020
     Route: 048
     Dates: start: 20190902
  11. ACYCLOVIR [Concomitant]
     Active Substance: ACYCLOVIR
     Indication: Antiviral prophylaxis
     Dosage: 400 MG, BID, DATE OF LAST ADMINISTARTION PRIOR TO SAE: 27-NOV-2020
     Route: 048
     Dates: start: 20190902
  12. ASPIRIN [Concomitant]
     Active Substance: ASPIRIN
     Indication: Thrombosis prophylaxis
     Dosage: DAILY DOSE: 100 MG, DATE OF LAST ADMINISTARTION PRIOR TO SAE: 27-NOV-2020
     Route: 048
     Dates: start: 20190902
  13. PANTOPRAZOLE [Concomitant]
     Active Substance: PANTOPRAZOLE
     Indication: Prophylaxis against gastrointestinal ulcer
     Dosage: DAILY DOSE: 40 MG, DATE OF LAST ADMINISTARTION PRIOR TO SAE: 27-NOV-2020
     Route: 048
     Dates: start: 20190902

REACTIONS (1)
  - Rash maculo-papular [Recovered/Resolved]

NARRATIVE: CASE EVENT DATE: 20201128
